FAERS Safety Report 8480005-4 (Version None)
Quarter: 2012Q2

REPORT INFORMATION
  Report Type: 
  Country: None (occurrence: None)
  Receive Date: 20120629
  Receipt Date: 20120620
  Transmission Date: 20120825
  Serious: Yes (Other)
  Sender: FDA-Public Use
  Company Number: FR-ALLERGAN-1205550US

PATIENT
  Age: 84 Year
  Sex: Male
  Weight: 78 kg

DRUGS (4)
  1. PLAVIX [Suspect]
     Indication: RETINAL VEIN OCCLUSION
     Dosage: 1 DF, QD
     Dates: start: 20100101
  2. ALLOPURINOL [Suspect]
     Indication: GOUT
     Dosage: 1 DF, QD
     Dates: start: 20100101
  3. KARDEGIC [Suspect]
     Indication: RETINAL VEIN OCCLUSION
     Dosage: 1 DF, QD
     Dates: start: 20100101
  4. BIMATOPROST AND TIMOLOL MALEATE [Suspect]
     Indication: GLAUCOMA
     Dosage: 2 GTT, QPM
     Route: 047
     Dates: start: 20110101, end: 20120501

REACTIONS (3)
  - ERYTHROCYANOSIS [None]
  - CYANOSIS [None]
  - NEUROPATHY PERIPHERAL [None]
